FAERS Safety Report 5604880-3 (Version None)
Quarter: 2008Q1

REPORT INFORMATION
  Report Type: 
  Country: None (occurrence: None)
  Receive Date: 20080111
  Receipt Date: 20071005
  Transmission Date: 20080703
  Serious: Yes (Other)
  Sender: FDA-Public Use
  Company Number: HQWYE026514APR05

PATIENT
  Age: 69 Year
  Sex: Female
  Weight: 76.64 kg

DRUGS (8)
  1. PREMPRO [Suspect]
     Indication: HORMONE REPLACEMENT THERAPY
     Dosage: ORAL
     Route: 048
     Dates: start: 19860101, end: 20030101
  2. MEDROXYPROGESTERONE ACETATE [Suspect]
  3. PREMARIN [Suspect]
  4. PROVERA [Suspect]
  5. ATENOLOL [Concomitant]
  6. ASPIRIN [Concomitant]
  7. HYDROCHLOROTHIAZIDE [Concomitant]
  8. LIPITOR [Concomitant]

REACTIONS (1)
  - BREAST CANCER [None]
